FAERS Safety Report 8588962-2 (Version None)
Quarter: 2012Q3

REPORT INFORMATION
  Report Type: 
  Country: None (occurrence: None)
  Receive Date: 20120813
  Receipt Date: 20120801
  Transmission Date: 20120928
  Serious: Yes (Hospitalization, Disabling)
  Sender: FDA-Public Use
  Company Number: US-BAYER-2012-011089

PATIENT
  Age: 33 Year
  Sex: Female
  Weight: 97 kg

DRUGS (12)
  1. YASMIN [Suspect]
     Indication: CONTRACEPTION
     Dosage: UNK
     Dates: start: 20090805, end: 20091227
  2. LISINOPRIL [Concomitant]
  3. LEXAPRO [Concomitant]
  4. TEMAZEPAM [Concomitant]
  5. OMEPRAZOLE [Concomitant]
  6. CLONAZEPAM [Concomitant]
  7. TRAMADOL HCL [Concomitant]
  8. LIDOCAINE [Concomitant]
  9. COLACE [Concomitant]
  10. SENOKOT [Concomitant]
  11. BETHANECHOL [Concomitant]
  12. GABAPENTIN [Concomitant]

REACTIONS (14)
  - ANXIETY [None]
  - VISUAL FIELD DEFECT [None]
  - INJURY [None]
  - CEREBRAL HAEMORRHAGE [None]
  - DEEP VEIN THROMBOSIS [None]
  - RESPIRATORY FAILURE [None]
  - HEADACHE [None]
  - GAIT DISTURBANCE [None]
  - HEMIPLEGIA [None]
  - PAIN [None]
  - GENERAL PHYSICAL HEALTH DETERIORATION [None]
  - PULMONARY EMBOLISM [None]
  - EMOTIONAL DISTRESS [None]
  - VOMITING [None]
